FAERS Safety Report 9738900 (Version 1)
Quarter: 2013Q4

REPORT INFORMATION
  Report Type: Report from Study
  Country: IN (occurrence: IN)
  Receive Date: 20131209
  Receipt Date: 20131209
  Transmission Date: 20140711
  Serious: Yes (Other)
  Sender: FDA-Public Use
  Company Number: IN-BAYER-2013-146833

PATIENT
  Sex: Female

DRUGS (2)
  1. NIFEDIPINE [Suspect]
     Indication: GESTATIONAL HYPERTENSION
     Route: 048
  2. MAGNESIUM SULFATE [Concomitant]
     Indication: CONVULSION PROPHYLAXIS

REACTIONS (2)
  - Bradycardia foetal [None]
  - Exposure during pregnancy [None]
